FAERS Safety Report 15918705 (Version 2)
Quarter: 2019Q1

REPORT INFORMATION
  Report Type: Spontaneous
  Country: FR (occurrence: FR)
  Receive Date: 20190205
  Receipt Date: 20190208
  Transmission Date: 20190417
  Serious: Yes (Hospitalization)
  Sender: FDA-Public Use
  Company Number: FR-MYLANLABS-2019M1009174

PATIENT
  Age: 76 Year
  Sex: Female
  Weight: 103 kg

DRUGS (6)
  1. SPIRONOLACTONE. [Suspect]
     Active Substance: SPIRONOLACTONE
     Indication: NON-SMALL CELL LUNG CANCER
     Dosage: UNK
     Route: 048
     Dates: start: 20171221, end: 20180406
  2. CRIZOTINIB [Suspect]
     Active Substance: CRIZOTINIB
     Indication: NON-SMALL CELL LUNG CANCER
     Dosage: 200 MG, BID
     Route: 048
     Dates: start: 20170803
  3. MONTELUKAST [Concomitant]
     Active Substance: MONTELUKAST SODIUM
  4. TINZAPARIN SODIUM [Concomitant]
     Active Substance: TINZAPARIN SODIUM
     Dosage: UNK
     Dates: start: 20160517
  5. CRIZOTINIB [Suspect]
     Active Substance: CRIZOTINIB
     Dosage: 200 MG, BID
     Route: 048
     Dates: start: 20180406
  6. LASILIX                            /00032601/ [Suspect]
     Active Substance: FUROSEMIDE
     Indication: PRODUCT USED FOR UNKNOWN INDICATION
     Dosage: UNK
     Route: 048
     Dates: start: 20171212

REACTIONS (3)
  - Presyncope [Unknown]
  - Fall [Unknown]
  - Orthostatic hypotension [Recovered/Resolved with Sequelae]

NARRATIVE: CASE EVENT DATE: 20180414
